FAERS Safety Report 9145410 (Version 1)
Quarter: 2013Q1

REPORT INFORMATION
  Report Type: Spontaneous
  Country: FR (occurrence: FR)
  Receive Date: 20130307
  Receipt Date: 20130307
  Transmission Date: 20140127
  Serious: Yes (Hospitalization)
  Sender: FDA-Public Use
  Company Number: FR-JNJFOC-20130215858

PATIENT
  Age: 74 Year
  Sex: Female

DRUGS (7)
  1. XARELTO [Suspect]
     Indication: KNEE ARTHROPLASTY
     Route: 048
     Dates: start: 20121017, end: 20121022
  2. XARELTO [Suspect]
     Indication: THROMBOSIS PROPHYLAXIS
     Route: 048
     Dates: start: 20121017, end: 20121022
  3. PARAFFIN LIQUID [Concomitant]
     Route: 048
     Dates: start: 20121025
  4. HEXAQUINE [Concomitant]
     Route: 048
  5. EDUCTYL [Concomitant]
     Route: 048
     Dates: start: 20121030
  6. OPIOIDS [Concomitant]
     Route: 048
     Dates: start: 20121019, end: 20121110
  7. LEVOTHYROX [Concomitant]
     Route: 048

REACTIONS (2)
  - Deep vein thrombosis [Recovered/Resolved]
  - Drug ineffective [Recovered/Resolved]
